FAERS Safety Report 23601829 (Version 2)
Quarter: 2024Q1

REPORT INFORMATION
  Report Type: Spontaneous
  Country: US (occurrence: US)
  Receive Date: 20240306
  Receipt Date: 20240318
  Transmission Date: 20240410
  Serious: No
  Sender: FDA-Public Use
  Company Number: US-KARYOPHARM-2023KPT002280

PATIENT

DRUGS (21)
  1. XPOVIO [Suspect]
     Active Substance: SELINEXOR
     Indication: Plasma cell myeloma
     Dosage: 100 MG, WEEKLY
     Route: 048
     Dates: start: 20231128, end: 202401
  2. ELIQUIS [Concomitant]
     Active Substance: APIXABAN
  3. ENTRESTO [Concomitant]
     Active Substance: SACUBITRIL\VALSARTAN
  4. FARXIGA [Concomitant]
     Active Substance: DAPAGLIFLOZIN PROPANEDIOL
  5. LEXAPRO [Concomitant]
     Active Substance: ESCITALOPRAM OXALATE
  6. LOPERAMIDE HYDROCHLORIDE [Concomitant]
     Active Substance: LOPERAMIDE HYDROCHLORIDE
  7. LOPRESSOR [Concomitant]
     Active Substance: METOPROLOL TARTRATE
  8. ZOFRAN [Concomitant]
     Active Substance: ONDANSETRON HYDROCHLORIDE
  9. AVODART [Concomitant]
     Active Substance: DUTASTERIDE
  10. BACLOFEN [Concomitant]
     Active Substance: BACLOFEN
  11. BACTRIM DS [Concomitant]
     Active Substance: SULFAMETHOXAZOLE\TRIMETHOPRIM
  12. DARZALEX [Concomitant]
     Active Substance: DARATUMUMAB
  13. DEXAMETHASONE [Concomitant]
     Active Substance: DEXAMETHASONE
  14. KLOR-CON M20 [Concomitant]
     Active Substance: POTASSIUM CHLORIDE
  15. TYLENOL 8 HR ARTHRITIS PAIN [Concomitant]
     Active Substance: ACETAMINOPHEN
  16. VALACYCLOVIR HYDROCHLORIDE [Concomitant]
     Active Substance: VALACYCLOVIR HYDROCHLORIDE
  17. METAMUCIL [Concomitant]
     Active Substance: PLANTAGO SEED
  18. METOPROLOL SUCCINATE [Concomitant]
     Active Substance: METOPROLOL SUCCINATE
  19. OLANZAPINE [Concomitant]
     Active Substance: OLANZAPINE
  20. TAMSULOSIN [Concomitant]
     Active Substance: TAMSULOSIN
  21. DUTASTERIDE [Concomitant]
     Active Substance: DUTASTERIDE

REACTIONS (5)
  - Insomnia [Unknown]
  - Urinary incontinence [Unknown]
  - Nausea [Not Recovered/Not Resolved]
  - Diarrhoea [Unknown]
  - Fatigue [Not Recovered/Not Resolved]

NARRATIVE: CASE EVENT DATE: 20231201
